FAERS Safety Report 18338609 (Version 5)
Quarter: 2022Q1

REPORT INFORMATION
  Report Type: Spontaneous
  Country: DE (occurrence: DE)
  Receive Date: 20201002
  Receipt Date: 20220105
  Transmission Date: 20220424
  Serious: Yes (Hospitalization, Other)
  Sender: FDA-Public Use
  Company Number: DE-GLAXOSMITHKLINE-DE2020GSK181637

PATIENT
  Age: 62 Year
  Sex: Female

DRUGS (8)
  1. AZITHROMYCIN [Suspect]
     Active Substance: AZITHROMYCIN
     Indication: Pneumonia
     Dosage: UNK
     Route: 065
  2. AMPICILLIN SODIUM\SULBACTAM SODIUM [Suspect]
     Active Substance: AMPICILLIN SODIUM\SULBACTAM SODIUM
     Indication: Pneumonia
     Dosage: UNK
     Route: 065
  3. AMPICILLIN SODIUM\SULBACTAM SODIUM [Suspect]
     Active Substance: AMPICILLIN SODIUM\SULBACTAM SODIUM
     Indication: Upper respiratory tract infection
  4. ACYCLOVIR [Suspect]
     Active Substance: ACYCLOVIR
     Indication: Meningitis bacterial
     Dosage: UNK
     Route: 065
  5. CEFTRIAXONE [Suspect]
     Active Substance: CEFTRIAXONE
     Indication: Meningitis bacterial
     Dosage: UNK
     Route: 065
  6. AMPICILLIN [Suspect]
     Active Substance: AMPICILLIN
     Indication: Meningitis bacterial
     Dosage: UNK
     Route: 065
  7. DEXAMETHASONE [Suspect]
     Active Substance: DEXAMETHASONE
     Indication: Meningitis bacterial
     Dosage: UNK
     Route: 065
  8. DIPHTHERIA TOXOID NOS [Suspect]
     Active Substance: CORYNEBACTERIUM DIPHTHERIAE TOXOID ANTIGEN (FORMALDEHYDE INACTIVATED)
     Indication: Prophylaxis
     Dosage: UNK

REACTIONS (19)
  - Acute disseminated encephalomyelitis [Recovered/Resolved]
  - Upper respiratory tract infection [Recovered/Resolved]
  - Pneumonia [Recovered/Resolved]
  - Pyrexia [Recovered/Resolved]
  - General physical health deterioration [Unknown]
  - Depressed level of consciousness [Recovered/Resolved]
  - Brain oedema [Unknown]
  - Meningitis bacterial [Unknown]
  - Meningoencephalitis bacterial [Recovered/Resolved]
  - Hemiparesis [Recovered/Resolved]
  - Meningism [Recovered/Resolved]
  - Gait disturbance [Recovered/Resolved]
  - Aphasia [Recovered/Resolved]
  - Drug ineffective [Unknown]
  - Somnolence [Recovered/Resolved]
  - Central nervous system lesion [Unknown]
  - White matter lesion [Unknown]
  - Monoparesis [Recovered/Resolved]
  - Inflammation [Unknown]

NARRATIVE: CASE EVENT DATE: 20181126
